FAERS Safety Report 12209336 (Version 1)
Quarter: 2016Q1

REPORT INFORMATION
  Report Type: Report from Study
  Country: GB (occurrence: GB)
  Receive Date: 20160324
  Receipt Date: 20160324
  Transmission Date: 20160526
  Serious: Yes (Other)
  Sender: FDA-Public Use
  Company Number: GB-REGENERON PHARMACEUTICALS, INC.-2016-14542

PATIENT

DRUGS (9)
  1. BLINDED LASER [Suspect]
     Active Substance: DEVICE
     Indication: DIABETIC RETINOPATHY
     Dosage: UNK
     Dates: start: 20151014
  2. AQUAMOX [Concomitant]
     Dosage: 1 APPLICATION, PRN
     Dates: start: 2010
  3. FLUORESCEIN [Concomitant]
     Active Substance: FLUORESCEIN
     Dosage: 5 ML, UNK
     Dates: start: 20151014, end: 20151014
  4. CHLORAMPHENICOL [Concomitant]
     Active Substance: CHLORAMPHENICOL
     Dosage: 1 GTT, QID
     Dates: start: 20151014, end: 20151018
  5. NOVORAPID [Concomitant]
     Active Substance: INSULIN ASPART
     Dosage: 40 IU, CONT
     Dates: start: 2012
  6. EYLEA [Suspect]
     Active Substance: AFLIBERCEPT
     Indication: DIABETIC RETINOPATHY
     Dosage: UNK
     Dates: start: 20151014
  7. ACIDEX                             /01521901/ [Concomitant]
     Active Substance: CALCIUM CARBONATE\SODIUM ALGINATE\SODIUM BICARBONATE
     Dosage: 1 TABLESPOON, PRN
     Dates: start: 2013
  8. CITALOPRAM [Concomitant]
     Active Substance: CITALOPRAM HYDROBROMIDE
     Dosage: 20 MG, QD
     Dates: start: 2012
  9. EMULSIFYING                        /00662801/ [Concomitant]
     Dosage: 1 APPLICATION, PRN
     Dates: start: 2010

REACTIONS (1)
  - Vitreous haemorrhage [Not Recovered/Not Resolved]

NARRATIVE: CASE EVENT DATE: 20151106
